FAERS Safety Report 4585550-X (Version None)
Quarter: 2005Q1

REPORT INFORMATION
  Report Type: 
  Country: None (occurrence: None)
  Receive Date: 20050214
  Receipt Date: 20041007
  Transmission Date: 20050727
  Serious: Yes (Hospitalization)
  Sender: FDA-Public Use
  Company Number: 05-088

PATIENT
  Age: 61 Year
  Sex: Female

DRUGS (13)
  1. DEXAMETHASONE [Suspect]
     Indication: MULTIPLE MYELOMA
     Dosage: 40 MG/DAY, ORAL
     Route: 048
     Dates: start: 20030112, end: 20030122
  2. GENASENSE [Suspect]
     Indication: MULTIPLE MYELOMA
     Dosage: 7 MG/KG/DAY, INTRAVENOUS
     Route: 048
     Dates: start: 20030102, end: 20030123
  3. TRIMETHOPRIM-SULFAMETHOXAZOLE [Concomitant]
  4. RANITIDINE [Concomitant]
  5. VALSARTAN [Concomitant]
  6. INSULIN [Concomitant]
  7. CELECOXIB [Concomitant]
  8. GLYBURIDE [Concomitant]
  9. GEMFIBROZIL [Concomitant]
  10. NIFEDIPINE [Concomitant]
  11. ACETAMINOPHEN [Concomitant]
  12. PANTOPRAZOLE [Concomitant]
  13. MULTI-VITAMIN [Concomitant]

REACTIONS (5)
  - ATELECTASIS [None]
  - HYPERGLYCAEMIA [None]
  - HYPERKALAEMIA [None]
  - PNEUMONIA [None]
  - RENAL FAILURE CHRONIC [None]
